FAERS Safety Report 8468793-4 (Version None)
Quarter: 2012Q2

REPORT INFORMATION
  Report Type: 
  Country: None (occurrence: None)
  Receive Date: 20120626
  Receipt Date: 20120611
  Transmission Date: 20120825
  Serious: Yes (Other)
  Sender: FDA-Public Use
  Company Number: IN-WATSON-2012-10490

PATIENT
  Age: 18 Hour
  Sex: Female

DRUGS (1)
  1. VALPROATE SODIUM [Suspect]
     Indication: FOETAL EXPOSURE DURING PREGNANCY
     Dosage: UNK
     Route: 064

REACTIONS (5)
  - FOETAL ANTICONVULSANT SYNDROME [None]
  - LIMB DEFORMITY [None]
  - CONGENITAL CARDIOVASCULAR ANOMALY [None]
  - DYSMORPHISM [None]
  - MATERNAL EXPOSURE DURING PREGNANCY [None]
